FAERS Safety Report 24250337 (Version 1)
Quarter: 2024Q3

REPORT INFORMATION
  Report Type: Spontaneous
  Country: US (occurrence: None)
  Receive Date: 20240824
  Receipt Date: 20240824
  Transmission Date: 20241016
  Serious: Yes (Other)
  Sender: Public
  Company Number: None

PATIENT
  Age: 61 Year
  Sex: Male
  Weight: 78.3 kg

DRUGS (2)
  1. DESCOVY [Suspect]
     Active Substance: EMTRICITABINE\TENOFOVIR ALAFENAMIDE FUMARATE
     Indication: HIV infection
     Dosage: DAILY ORAL
     Route: 048
     Dates: start: 20240823, end: 20240824
  2. Men^s 50+ multivitamin [Concomitant]

REACTIONS (6)
  - Salivary hypersecretion [None]
  - Throat tightness [None]
  - Oesophageal obstruction [None]
  - Abdominal distension [None]
  - Vomiting [None]
  - Epigastric discomfort [None]

NARRATIVE: CASE EVENT DATE: 20240824
